FAERS Safety Report 4317083-X (Version None)
Quarter: 2004Q1

REPORT INFORMATION
  Report Type: 
  Country: None (occurrence: None)
  Receive Date: 20040312
  Receipt Date: 20040216
  Transmission Date: 20041129
  Serious: Yes (Hospitalization)
  Sender: FDA-Public Use
  Company Number: S04-FRA-00453-01

PATIENT
  Age: 80 Year
  Sex: Female

DRUGS (4)
  1. SEROPRAM (CITALOPRAM HYDROBROMIDE) [Suspect]
     Dosage: 20 MG QD PO
     Route: 048
     Dates: end: 20030712
  2. METHYCLOTHIAZIDE/TRIAMTERENE [Suspect]
     Dosage: 1 QD PO
     Route: 048
     Dates: end: 20030712
  3. IMOVANE (ZOPICLONE) [Concomitant]
  4. PLAVIX [Concomitant]

REACTIONS (4)
  - HYPERCHLORAEMIA [None]
  - HYPOKALAEMIA [None]
  - HYPONATRAEMIA [None]
  - MALAISE [None]
